FAERS Safety Report 5707134-X (Version None)
Quarter: 2008Q2

REPORT INFORMATION
  Report Type: 
  Country: None (occurrence: None)
  Receive Date: 20080416
  Receipt Date: 20080404
  Transmission Date: 20081010
  Serious: Yes (Death, Hospitalization)
  Sender: FDA-Public Use
  Company Number: GB-ROCHE-550351

PATIENT
  Sex: Female
  Weight: 72 kg

DRUGS (6)
  1. XELODA [Suspect]
     Dosage: 1150MG AM, 1000MG PM
     Route: 048
     Dates: start: 20080131
  2. EPIRUBICIN [Concomitant]
     Route: 042
     Dates: start: 20080131
  3. CISPLATIN [Concomitant]
     Route: 042
     Dates: start: 20080331
  4. OMEPRAZOLE [Concomitant]
     Route: 048
  5. ONDANSETRON [Concomitant]
     Route: 048
  6. LACTULOSE [Concomitant]
     Route: 048

REACTIONS (5)
  - DEATH [None]
  - DIARRHOEA [None]
  - NEUTROPENIA [None]
  - PYREXIA [None]
  - VOMITING [None]
